FAERS Safety Report 17240258 (Version 2)
Quarter: 2022Q2

REPORT INFORMATION
  Report Type: Other
  Country: US (occurrence: None)
  Receive Date: 20200107
  Receipt Date: 20220420
  Transmission Date: 20220720
  Serious: Yes (Death, Hospitalization)
  Sender: FDA-Public Use
  Company Number: US-ROCHE-2378619

PATIENT
  Sex: Male

DRUGS (1)
  1. PULMOZYME [Suspect]
     Active Substance: DORNASE ALFA
     Indication: Lung transplant
     Dosage: NEBULIZE THE CONTENTS OF 1 VIAL(S) 2.5MG INTO THE LUNGS DAILY
     Route: 065

REACTIONS (3)
  - Off label use [Unknown]
  - Pleural effusion [Unknown]
  - Death [Fatal]
